FAERS Safety Report 5420121-4 (Version None)
Quarter: 2007Q3

REPORT INFORMATION
  Report Type: 
  Country: None (occurrence: None)
  Receive Date: 20070820
  Receipt Date: 20070808
  Transmission Date: 20080115
  Serious: Yes (Hospitalization, Other)
  Sender: FDA-Public Use
  Company Number: AR-PFIZER INC-2007067382

PATIENT
  Age: 16 Year
  Sex: Female

DRUGS (6)
  1. LYRICA [Suspect]
     Indication: NEUROPATHY PERIPHERAL
     Dosage: DAILY DOSE:600MG
  2. LYRICA [Suspect]
     Indication: NEURALGIA
  3. NPH INSULIN [Concomitant]
  4. AMITRIPTYLINE HCL [Concomitant]
  5. CARBAMAZEPINE [Concomitant]
  6. VITAMIN B COMPLEX CAP [Concomitant]
     Route: 048

REACTIONS (3)
  - NERVE ROOT LESION [None]
  - OEDEMA PERIPHERAL [None]
  - SKIN LESION [None]
